FAERS Safety Report 12603683 (Version 1)
Quarter: 2016Q3

REPORT INFORMATION
  Report Type: Spontaneous
  Country: GB (occurrence: GB)
  Receive Date: 20160728
  Receipt Date: 20160728
  Transmission Date: 20161109
  Serious: Yes (Death, Other)
  Sender: FDA-Public Use
  Company Number: GB-ASTELLAS-2016US029074

PATIENT
  Age: 62 Year
  Sex: Male

DRUGS (2)
  1. AMBISOME [Suspect]
     Active Substance: AMPHOTERICIN B
     Indication: HEPATOSPLENIC CANDIDIASIS
     Dosage: UNK, UNKNOWN FREQ.
     Route: 042
  2. FLUCONAZOLE. [Suspect]
     Active Substance: FLUCONAZOLE
     Indication: HEPATOSPLENIC CANDIDIASIS
     Route: 048

REACTIONS (1)
  - Drug ineffective [Fatal]
